FAERS Safety Report 7274384-3 (Version None)
Quarter: 2011Q1

REPORT INFORMATION
  Report Type: 
  Country: None (occurrence: None)
  Receive Date: 20110204
  Receipt Date: 20110126
  Transmission Date: 20110831
  Serious: Yes (Other)
  Sender: FDA-Public Use
  Company Number: GB-SOLVAY-00210007590

PATIENT
  Age: 42 Year
  Sex: Male

DRUGS (3)
  1. PERINDOPRIL ERBUMINE [Suspect]
     Indication: PRODUCT USED FOR UNKNOWN INDICATION
     Dosage: DAILY DOSE: 4 MILLIGRAM(S)
     Route: 048
     Dates: start: 20100101, end: 20100101
  2. SIMVASTATIN [Concomitant]
     Indication: CEREBROVASCULAR ACCIDENT PROPHYLAXIS
     Dosage: DAILY DOSE: 40 MILLIGRAM(S)
     Route: 065
     Dates: start: 20020101
  3. ASPIRIN [Concomitant]
     Indication: CEREBROVASCULAR ACCIDENT PROPHYLAXIS
     Dosage: DAILY DOSE: 75 MILLIGRAM(S)
     Route: 065
     Dates: start: 20020101

REACTIONS (1)
  - INFERTILITY MALE [None]
